FAERS Safety Report 10504018 (Version 5)
Quarter: 2014Q4

REPORT INFORMATION
  Report Type: Spontaneous
  Country: US (occurrence: US)
  Receive Date: 20141008
  Receipt Date: 20141223
  Transmission Date: 20150528
  Serious: Yes (Other)
  Sender: FDA-Public Use
  Company Number: US-JNJFOC-20140912731

PATIENT
  Age: 82 Year
  Sex: Female
  Weight: 65.32 kg

DRUGS (10)
  1. BENADRYL [Concomitant]
     Active Substance: DIPHENHYDRAMINE HYDROCHLORIDE
     Indication: HYPERSENSITIVITY
     Dosage: STARTED IN 1990^S
     Route: 065
  2. XARELTO [Suspect]
     Active Substance: RIVAROXABAN
     Indication: ATRIAL FIBRILLATION
     Route: 048
     Dates: start: 20140204, end: 20140829
  3. XARELTO [Suspect]
     Active Substance: RIVAROXABAN
     Indication: CEREBROVASCULAR ACCIDENT PROPHYLAXIS
     Route: 048
     Dates: start: 20140204, end: 20140829
  4. MAGNESIUM [Concomitant]
     Active Substance: MAGNESIUM
     Indication: CARDIAC DISORDER
     Dosage: STARTED IN 1990^S
     Route: 065
  5. VITAMIN B12 [Concomitant]
     Active Substance: CYANOCOBALAMIN
     Indication: GENERAL PHYSICAL CONDITION
     Dosage: STARTED IN 1990^S
     Route: 065
  6. CALCIUM [Concomitant]
     Active Substance: CALCIUM
     Indication: GENERAL PHYSICAL CONDITION
     Dosage: STARTED IN 1990^S
     Route: 065
  7. DIGOXIN. [Concomitant]
     Active Substance: DIGOXIN
     Indication: ATRIAL FIBRILLATION
     Dosage: STARTED IN 1990^S
     Route: 065
  8. TYLENOL [Concomitant]
     Active Substance: ACETAMINOPHEN
     Indication: ARTHRITIS
     Dosage: STARTED IN 1990^S
     Route: 065
  9. DILTIAZEM [Concomitant]
     Active Substance: DILTIAZEM
     Indication: BLOOD PRESSURE ABNORMAL
     Route: 065
  10. SYNTHROID [Concomitant]
     Active Substance: LEVOTHYROXINE SODIUM
     Indication: HYPERTHYROIDISM
     Dosage: STARTED IN 1990^S
     Route: 065

REACTIONS (4)
  - Haemorrhage [Unknown]
  - Pain [Recovering/Resolving]
  - Haematuria [Recovered/Resolved]
  - Joint effusion [Recovering/Resolving]

NARRATIVE: CASE EVENT DATE: 20140830
